FAERS Safety Report 24531309 (Version 1)
Quarter: 2024Q4

REPORT INFORMATION
  Report Type: Report from Study
  Country: US (occurrence: US)
  Receive Date: 20241022
  Receipt Date: 20241022
  Transmission Date: 20250114
  Serious: No
  Sender: ROCHE
  Company Number: US-ROCHE-3442819

PATIENT
  Age: 60 Year
  Sex: Female

DRUGS (16)
  1. PULMOZYME [Suspect]
     Active Substance: DORNASE ALFA
     Indication: Bronchiectasis
     Dosage: STRENGTH : 2.5 MG/2.5 ML, INHALE INTO THE LUNGS DAILY
     Route: 055
     Dates: start: 20231017
  2. ACETAMINOPHEN [Concomitant]
     Active Substance: ACETAMINOPHEN
     Dosage: AS NEEDED
     Route: 048
  3. ACETYLCYSTEINE [Concomitant]
     Active Substance: ACETYLCYSTEINE
     Dosage: 20 % NEBULIZER SOLUTION
  4. AZATHIOPRINE [Concomitant]
     Active Substance: AZATHIOPRINE
     Dosage: 50 MG TABLET
  5. BUDESONIDE [Concomitant]
     Active Substance: BUDESONIDE
     Dosage: 1 MG/2 ML NEBULIZER SOLUTION
  6. CALCIUM CARBONATE\CHOLECALCIFEROL [Concomitant]
     Active Substance: CALCIUM CARBONATE\CHOLECALCIFEROL
     Dosage: 600-800 MG UNIT TAB
  7. CETIRIZINE HYDROCHLORIDE [Concomitant]
     Active Substance: CETIRIZINE HYDROCHLORIDE
     Dosage: 10 MG TABLET
  8. DICYCLOMINE [Concomitant]
     Active Substance: DICYCLOMINE HYDROCHLORIDE
     Dosage: 10 MG TABLET
  9. ESCITALOPRAM [Concomitant]
     Active Substance: ESCITALOPRAM OXALATE
     Dosage: 10 MG TABLET
  10. FUROSEMIDE [Concomitant]
     Active Substance: FUROSEMIDE
     Dosage: 20 MG TABLET
  11. MONTELUKAST [Concomitant]
     Active Substance: MONTELUKAST
     Dosage: 10 MG TABLET
  12. PANTOPRAZOLE [Concomitant]
     Active Substance: PANTOPRAZOLE
     Dosage: 40 MG TABLET
  13. PREDNISONE [Concomitant]
     Active Substance: PREDNISONE
     Dosage: 1 MG TABLET
  14. PROPYLTHIOURACIL [Concomitant]
     Active Substance: PROPYLTHIOURACIL
     Dosage: 50 MG TABLET
  15. SODIUM CHLORIDE [Concomitant]
     Active Substance: SODIUM CHLORIDE
     Dosage: 3 % NEBULIZER SOLUTION
  16. SULFAMETHOXAZOLE\TRIMETHOPRIM [Concomitant]
     Active Substance: SULFAMETHOXAZOLE\TRIMETHOPRIM
     Dosage: TAKE 1 TABLET BY MOUTH

REACTIONS (2)
  - Off label use [Unknown]
  - No adverse event [Unknown]
